FAERS Safety Report 7256038-2 (Version None)
Quarter: 2011Q1

REPORT INFORMATION
  Report Type: 
  Country: None (occurrence: None)
  Receive Date: 20110129
  Receipt Date: 20100518
  Transmission Date: 20110831
  Serious: No
  Sender: FDA-Public Use
  Company Number: US-ABBOTT-10P-163-0638644-00

PATIENT
  Age: 34 Year
  Weight: 52.21 kg

DRUGS (1)
  1. HUMIRA [Suspect]
     Indication: RHEUMATOID ARTHRITIS
     Dates: start: 20080501

REACTIONS (6)
  - ABDOMINAL DISTENSION [None]
  - ENDOMETRIAL HYPERPLASIA [None]
  - PELVIC PAIN [None]
  - OVARIAN CYST [None]
  - ENDOMETRIAL NEOPLASM [None]
  - ABDOMINAL PAIN [None]
